FAERS Safety Report 8808557 (Version 1)
Quarter: 2012Q4

REPORT INFORMATION
  Report Type: Spontaneous
  Country: LV (occurrence: None)
  Receive Date: 20120920
  Receipt Date: 20120920
  Transmission Date: 20130627
  Serious: Yes (Hospitalization)
  Sender: FDA-Public Use
  Company Number: 2012HGS-003940

PATIENT
  Age: 43 Year
  Sex: Female
  Weight: 61 kg

DRUGS (4)
  1. BENLYSTA [Suspect]
     Indication: SLE
     Dosage: 10 mg/kg, intravenous drip
     Route: 041
  2. PREDNISOLONE (PREDNISOLONE) (PREDNISOLONE) [Concomitant]
  3. HYOXYCHLOROQUINE (HYDROXYCHLOROQUINE SULFATE) HYDROXYCHLOROQUINE SULFATE) [Concomitant]
  4. AZATHIOPRINE (AZATHIOPRINE) (AZATHIOPRINE) [Concomitant]

REACTIONS (4)
  - Hypotension [None]
  - Asthenia [None]
  - Dizziness [None]
  - Dysstasia [None]
